FAERS Safety Report 23961631 (Version 2)
Quarter: 2024Q3

REPORT INFORMATION
  Report Type: Report from Study
  Country: CN (occurrence: CN)
  Receive Date: 20240611
  Receipt Date: 20240702
  Transmission Date: 20241016
  Serious: Yes (Death, Other)
  Sender: PFIZER
  Company Number: CN-TAKEDA-2022TUS088581

PATIENT
  Age: 29 Year
  Sex: Female
  Weight: 57.2 kg

DRUGS (17)
  1. ADCETRIS [Suspect]
     Active Substance: BRENTUXIMAB VEDOTIN
     Indication: Anaplastic large cell lymphoma T- and null-cell types
     Dosage: 100 MILLIGRAM, 2/WEEK
     Route: 041
     Dates: start: 20220827, end: 20221109
  2. ADCETRIS [Suspect]
     Active Substance: BRENTUXIMAB VEDOTIN
     Dosage: 50 MILLIGRAM, 2/WEEK
     Route: 041
     Dates: start: 20221009
  3. ADCETRIS [Suspect]
     Active Substance: BRENTUXIMAB VEDOTIN
     Dosage: 100 MG
     Route: 041
     Dates: start: 20221009
  4. DOXORUBICIN HYDROCHLORIDE [Suspect]
     Active Substance: DOXORUBICIN HYDROCHLORIDE
     Indication: Anaplastic large cell lymphoma T- and null-cell types
     Dosage: 60 MILLIGRAM
     Route: 042
     Dates: start: 20220827, end: 20220827
  5. CYCLOPHOSPHAMIDE [Suspect]
     Active Substance: CYCLOPHOSPHAMIDE
     Indication: Anaplastic large cell lymphoma T- and null-cell types
     Dosage: 1 GRAM
     Route: 042
     Dates: start: 20220827, end: 20220827
  6. PREDNISOLONE [Suspect]
     Active Substance: PREDNISOLONE
     Indication: Anaplastic large cell lymphoma T- and null-cell types
     Dosage: 100 MILLIGRAM, QD
     Route: 042
     Dates: start: 20220827, end: 20220831
  7. MOXIFLOXACIN [Concomitant]
     Active Substance: MOXIFLOXACIN
     Indication: Anaplastic large cell lymphoma T- and null-cell types
     Dosage: UNK
     Route: 065
  8. HUMAN RED BLOOD CELL [Concomitant]
     Active Substance: HUMAN RED BLOOD CELL
     Indication: Anaplastic large cell lymphoma T- and null-cell types
     Dosage: UNK
     Route: 065
  9. GEMCITABINE HYDROCHLORIDE [Concomitant]
     Active Substance: GEMCITABINE HYDROCHLORIDE
     Indication: Lymphoma
     Dosage: 1.5 GRAM, QD
     Route: 042
     Dates: start: 20220917, end: 20220917
  10. GEMCITABINE HYDROCHLORIDE [Concomitant]
     Active Substance: GEMCITABINE HYDROCHLORIDE
     Dosage: 1.5 GRAM, QD
     Route: 042
     Dates: start: 20220924, end: 20220924
  11. TUCIDINOSTAT [Concomitant]
     Active Substance: TUCIDINOSTAT
     Indication: Lymphoma
     Dosage: 20 MILLIGRAM, 2/WEEK
     Route: 048
     Dates: start: 20220917, end: 20220924
  12. LIDOCAINE HYDROCHLORIDE [Concomitant]
     Active Substance: LIDOCAINE HYDROCHLORIDE
     Indication: Local anaesthesia
     Dosage: 0.1 GRAM
     Route: 030
     Dates: start: 20220907, end: 20220907
  13. AMMONIUM GLYCYRRHIZATE\CYSTEINE HYDROCHLORIDE\GLYCINE [Concomitant]
     Active Substance: AMMONIUM GLYCYRRHIZATE\CYSTEINE HYDROCHLORIDE\GLYCINE
     Indication: Prophylaxis
     Dosage: 60 MILLILITER
     Route: 041
     Dates: start: 20220907, end: 20220907
  14. POTASSIUM CHLORIDE [Concomitant]
     Active Substance: POTASSIUM CHLORIDE
     Indication: Mineral supplementation
     Dosage: 10 MILLILITER
     Route: 042
     Dates: start: 20220907, end: 20220907
  15. ACETAMINOPHEN [Concomitant]
     Active Substance: ACETAMINOPHEN
     Indication: Pyrexia
     Dosage: 0.5 GRAM
     Route: 048
     Dates: start: 20220907, end: 20220907
  16. IBUPROFEN [Concomitant]
     Active Substance: IBUPROFEN
     Indication: Pyrexia
     Dosage: 10 MILLILITER (SUSPENSION)
     Route: 048
     Dates: start: 20220907, end: 20220907
  17. DEXAMETHASONE [Concomitant]
     Active Substance: DEXAMETHASONE
     Indication: Lymphoma
     Dosage: 40 MILLIGRAM, QD
     Route: 042
     Dates: start: 20220917, end: 20220920

REACTIONS (8)
  - Neoplasm progression [Fatal]
  - Myelosuppression [Not Recovered/Not Resolved]
  - Pneumonia [Recovering/Resolving]
  - Malignant pleural effusion [Not Recovered/Not Resolved]
  - Malnutrition [Not Recovered/Not Resolved]
  - Vomiting [Recovered/Resolved]
  - Anaemia [Not Recovered/Not Resolved]
  - Nausea [Recovered/Resolved]

NARRATIVE: CASE EVENT DATE: 20221001
